FAERS Safety Report 18944867 (Version 1)
Quarter: 2021Q1

REPORT INFORMATION
  Report Type: Spontaneous
  Country: US (occurrence: US)
  Receive Date: 20210226
  Receipt Date: 20210226
  Transmission Date: 20210420
  Serious: Yes (Other)
  Sender: FDA-Public Use
  Company Number: US-ELI_LILLY_AND_COMPANY-US202102009145

PATIENT
  Sex: Female

DRUGS (1)
  1. INSULIN LISPRO [Suspect]
     Active Substance: INSULIN LISPRO
     Indication: DIABETES MELLITUS
     Dosage: UNK UNK, UNKNOWN
     Route: 058

REACTIONS (10)
  - Head injury [Unknown]
  - Bone disorder [Unknown]
  - Arthralgia [Unknown]
  - Fall [Unknown]
  - Neck pain [Unknown]
  - Headache [Unknown]
  - Meniscus injury [Unknown]
  - Neck crushing [Unknown]
  - Lacrimation increased [Unknown]
  - Craniocerebral injury [Unknown]
